FAERS Safety Report 19168484 (Version 1)
Quarter: 2021Q2

REPORT INFORMATION
  Report Type: Report from Study
  Country: PT (occurrence: PT)
  Receive Date: 20210422
  Receipt Date: 20210422
  Transmission Date: 20210717
  Serious: Yes (Death, Hospitalization)
  Sender: FDA-Public Use
  Company Number: PT-BAXTER-2021BAX007942

PATIENT
  Age: 55 Year
  Sex: Female
  Weight: 93 kg

DRUGS (3)
  1. EXTRANEAL 75MG/ML ? SACO ? 5 UNIDADE(S) ? 2000 ML [Suspect]
     Active Substance: CALCIUM CHLORIDE\ICODEXTRIN\MAGNESIUM CHLORIDE\SODIUM CHLORIDE\SODIUM LACTATE
     Indication: PERITONEAL DIALYSIS
     Route: 033
  2. NUTRINEAL PD4 [Suspect]
     Active Substance: AMINO ACIDS\CALCIUM CHLORIDE\MAGNESIUM CHLORIDE\SODIUM CHLORIDE\SODIUM LACTATE
     Indication: PERITONEAL DIALYSIS
     Route: 033
  3. PHYSIONEAL 40 GLUCOSE 1,36% P/V / 13,6 MG/ML [Suspect]
     Active Substance: CALCIUM CHLORIDE\DEXTROSE\MAGNESIUM CHLORIDE\SODIUM CHLORIDE
     Indication: PERITONEAL DIALYSIS
     Route: 033

REACTIONS (2)
  - Death [Fatal]
  - SARS-CoV-2 test positive [Unknown]

NARRATIVE: CASE EVENT DATE: 20210125
